FAERS Safety Report 11782262 (Version 2)
Quarter: 2015Q4

REPORT INFORMATION
  Report Type: Spontaneous
  Country: US (occurrence: US)
  Receive Date: 20151127
  Receipt Date: 20151130
  Transmission Date: 20160305
  Serious: Yes (Other)
  Sender: FDA-Public Use
  Company Number: US-ASTRAZENECA-2015SF00737

PATIENT
  Age: 939 Month
  Sex: Female
  Weight: 50 kg

DRUGS (16)
  1. VITAMIN B12 [Concomitant]
     Active Substance: CYANOCOBALAMIN
     Dosage: 1000 MCG DAILY
     Route: 048
     Dates: start: 20140507
  2. CALCIUM [Concomitant]
     Active Substance: CALCIUM
  3. ARIMIDEX [Suspect]
     Active Substance: ANASTROZOLE
     Indication: BREAST CANCER
     Route: 048
     Dates: end: 201308
  4. XANAX [Suspect]
     Active Substance: ALPRAZOLAM
     Dosage: 0.25 MG 8 HRS AS REQUIRED.
     Route: 048
     Dates: start: 20150701
  5. VITAMIN D [Concomitant]
     Active Substance: CHOLECALCIFEROL
  6. ASPIRIN. [Concomitant]
     Active Substance: ASPIRIN
     Route: 048
  7. ZOMETA [Suspect]
     Active Substance: ZOLEDRONIC ACID
     Indication: OESTROGEN RECEPTOR POSITIVE BREAST CANCER
     Dosage: 4 MG IV, 93 MOS
     Route: 042
     Dates: start: 20140805
  8. FASLODEX [Suspect]
     Active Substance: FULVESTRANT
     Indication: BREAST CANCER
     Dosage: 500 MG, 94 WEEKS
     Route: 030
     Dates: start: 201308
  9. VITAMIN E [Concomitant]
     Active Substance: .ALPHA.-TOCOPHEROL
     Dosage: 100 INTL UNITS DAILY 1
     Route: 048
     Dates: start: 20140507
  10. VITAMIN B12 [Concomitant]
     Active Substance: CYANOCOBALAMIN
     Dosage: 500MCG DAILY
     Route: 048
     Dates: start: 20140507
  11. ZOMETA [Suspect]
     Active Substance: ZOLEDRONIC ACID
     Indication: OESTROGEN RECEPTOR POSITIVE BREAST CANCER
     Route: 042
  12. AROMASIN [Suspect]
     Active Substance: EXEMESTANE
     Indication: OESTROGEN RECEPTOR POSITIVE BREAST CANCER
     Route: 048
     Dates: start: 20140604
  13. ULTRAM [Concomitant]
     Active Substance: TRAMADOL HYDROCHLORIDE
     Route: 048
     Dates: start: 20140908
  14. XANAX [Suspect]
     Active Substance: ALPRAZOLAM
     Dosage: AZOR, 5 MG -20 MG DAILY
     Route: 048
  15. PERCOCET [Concomitant]
     Active Substance: ACETAMINOPHEN\OXYCODONE HYDROCHLORIDE
     Dosage: 10/325  1 CUSTOM SIG
     Route: 048
     Dates: start: 20150123
  16. LORATADINE. [Concomitant]
     Active Substance: LORATADINE
     Route: 048
     Dates: start: 20150108

REACTIONS (8)
  - Disease progression [Unknown]
  - Lymphoedema [Unknown]
  - Dyspnoea exertional [Unknown]
  - Cancer pain [Unknown]
  - Oedema [Unknown]
  - Back pain [Unknown]
  - Arthralgia [Unknown]
  - Essential hypertension [Unknown]

NARRATIVE: CASE EVENT DATE: 201305
